FAERS Safety Report 18051830 (Version 6)
Quarter: 2021Q3

REPORT INFORMATION
  Report Type: Report from Study
  Country: DE (occurrence: DE)
  Receive Date: 20200721
  Receipt Date: 20210813
  Transmission Date: 20211014
  Serious: Yes (Hospitalization, Other)
  Sender: FDA-Public Use
  Company Number: DE-JNJFOC-20200721822

PATIENT
  Age: 7 Decade
  Sex: Male

DRUGS (11)
  1. DEKRISTOL [Concomitant]
     Active Substance: CHOLECALCIFEROL
  2. METOPROLOL. [Concomitant]
     Active Substance: METOPROLOL
  3. FOLIC ACID. [Concomitant]
     Active Substance: FOLIC ACID
  4. NOVALGIN (METAMIZOLE SODIUM) [Concomitant]
     Active Substance: METAMIZOLE SODIUM
  5. ATORVASTATIN [Concomitant]
     Active Substance: ATORVASTATIN
  6. LODOTRA [Concomitant]
     Active Substance: PREDNISONE
  7. ASPIRIN. [Concomitant]
     Active Substance: ASPIRIN
  8. SIMPONI [Suspect]
     Active Substance: GOLIMUMAB
     Indication: RHEUMATOID ARTHRITIS
     Route: 058
     Dates: start: 201911, end: 20200710
  9. METHOTREXATE (METHOTREXATE SODIUM) [Suspect]
     Active Substance: METHOTREXATE SODIUM
     Indication: RHEUMATOID ARTHRITIS
     Route: 065
     Dates: start: 202007
  10. METHOTREXATE (METHOTREXATE SODIUM) [Suspect]
     Active Substance: METHOTREXATE SODIUM
     Route: 065
  11. PREDNISOLONE. [Concomitant]
     Active Substance: PREDNISOLONE

REACTIONS (13)
  - Mitral valve incompetence [Unknown]
  - Thyroid neoplasm [Not Recovered/Not Resolved]
  - Synovial cyst [Not Recovered/Not Resolved]
  - Diverticulum [Unknown]
  - Mitral valve stenosis [Unknown]
  - Haematoma [Recovered/Resolved]
  - Osteoporosis [Unknown]
  - Cholelithiasis [Unknown]
  - Benign prostatic hyperplasia [Unknown]
  - Left ventricular hypertrophy [Unknown]
  - Rheumatoid arthritis [Recovered/Resolved]
  - Rheumatoid arthritis [Recovered/Resolved]
  - Large intestine polyp [Unknown]

NARRATIVE: CASE EVENT DATE: 20200515
